FAERS Safety Report 10073699 (Version 1)
Quarter: 2014Q2

REPORT INFORMATION
  Report Type: Spontaneous
  Country: US (occurrence: US)
  Receive Date: 20140411
  Receipt Date: 20140411
  Transmission Date: 20141212
  Serious: Yes (Other)
  Sender: FDA-Public Use
  Company Number: CHPA2014US005037

PATIENT
  Age: 52 Year
  Sex: Male

DRUGS (10)
  1. EXCEDRIN EXTRA STRENGTH [Suspect]
     Indication: HEADACHE
     Dosage: 2.5 TO 3 DF
     Route: 048
     Dates: start: 1984
  2. EXCEDRIN EXTRA STRENGTH [Suspect]
     Indication: ARTHRITIS
  3. EXCEDRIN EXTRA STRENGTH [Suspect]
     Indication: BACK PAIN
  4. EXCEDRIN EXTRA STRENGTH [Suspect]
     Indication: OFF LABEL USE
  5. EXCEDRIN MIGRAINE [Suspect]
     Indication: HEADACHE
     Dosage: 2.5 TO 3 DF
     Route: 048
     Dates: start: 1984
  6. EXCEDRIN MIGRAINE [Suspect]
     Indication: ARTHRITIS
  7. EXCEDRIN MIGRAINE [Suspect]
     Indication: BACK PAIN
  8. EXCEDRIN MIGRAINE [Suspect]
     Indication: OFF LABEL USE
  9. ALEVE [Concomitant]
  10. TYLENOL [Concomitant]

REACTIONS (2)
  - Colitis [Not Recovered/Not Resolved]
  - Drug ineffective for unapproved indication [Unknown]
